FAERS Safety Report 12643729 (Version 2)
Quarter: 2016Q4

REPORT INFORMATION
  Report Type: Report from Study
  Country: US (occurrence: US)
  Receive Date: 20160811
  Receipt Date: 20161025
  Transmission Date: 20170207
  Serious: Yes (Death, Hospitalization, Other)
  Sender: FDA-Public Use
  Company Number: US-BAYER-2016-129560

PATIENT
  Age: 67 Year
  Sex: Male
  Weight: 62.59 kg

DRUGS (18)
  1. MIDODRINE [Concomitant]
     Active Substance: MIDODRINE
     Dosage: 5 MG, TID
     Route: 048
  2. HEPARIN [Concomitant]
     Active Substance: HEPARIN SODIUM
     Dosage: 4 ML, PRN
     Route: 042
  3. ADEMPAS [Suspect]
     Active Substance: RIOCIGUAT
     Indication: PULMONARY HYPERTENSION
     Dosage: 1 MG, TID
     Route: 048
     Dates: start: 20160725, end: 20160726
  4. DEXTROSE. [Concomitant]
     Active Substance: DEXTROSE
     Dosage: 40 %, PRN
     Route: 048
  5. DEXTROSE. [Concomitant]
     Active Substance: DEXTROSE
     Dosage: 50 %, PRN
     Route: 042
  6. PHENYLEPHRINE [PHENYLEPHRINE] [Concomitant]
     Dosage: 50 MG
     Route: 042
  7. ONDANSETRON [Concomitant]
     Active Substance: ONDANSETRON
     Dosage: 4 MG/ 2ML
     Route: 042
  8. ADEMPAS [Suspect]
     Active Substance: RIOCIGUAT
     Indication: PULMONARY HYPERTENSION
     Dosage: 1.5 MG, TID
     Route: 048
  9. PANTOPRAZOLE [Concomitant]
     Active Substance: PANTOPRAZOLE SODIUM
     Dosage: 40 MG, BID
     Route: 042
  10. HEPARIN [Concomitant]
     Active Substance: HEPARIN SODIUM
     Dosage: 2 ML, PRN
     Route: 042
  11. ATORVASTATIN [Concomitant]
     Active Substance: ATORVASTATIN
     Dosage: 40 MG, QD
     Route: 048
  12. HEPARIN SODIUM W/SODIUM CHLORIDE [Concomitant]
     Dosage: 250 ML, UNK
     Route: 042
  13. ADEMPAS [Suspect]
     Active Substance: RIOCIGUAT
     Indication: PULMONARY HYPERTENSION
     Dosage: 1.5 MG, TID
     Route: 048
  14. GABAPENTIN. [Concomitant]
     Active Substance: GABAPENTIN
     Dosage: 100 MG, TID
     Route: 048
  15. VANCOMYCIN [Concomitant]
     Active Substance: VANCOMYCIN
     Dosage: 1000 MG, QD
     Route: 042
  16. ADEMPAS [Suspect]
     Active Substance: RIOCIGUAT
     Indication: PULMONARY HYPERTENSION
     Dosage: 0.5 MG, TID
     Route: 048
     Dates: start: 20160616
  17. REMODULIN [Suspect]
     Active Substance: TREPROSTINIL
  18. PIPERACILLIN SODIUM W/TAZOBACTAM [Concomitant]
     Active Substance: PIPERACILLIN SODIUM\TAZOBACTAM SODIUM
     Dosage: 3.375 G, TID
     Route: 042

REACTIONS (48)
  - Ejection fraction decreased [None]
  - Left ventricular dysfunction [None]
  - Pleural effusion [None]
  - Thoracic cavity drainage [None]
  - Hypovolaemic shock [None]
  - Oxygen supplementation [None]
  - Aortic valve incompetence [None]
  - Fatigue [None]
  - Blood pressure systolic increased [None]
  - Acute respiratory failure [None]
  - Anaemia [None]
  - Scleroderma [None]
  - Insomnia [None]
  - Cough [None]
  - Decubitus ulcer [Unknown]
  - Hypotension [None]
  - Pericardial effusion [None]
  - Cardiac hypertrophy [None]
  - Venous oxygen saturation decreased [None]
  - Cardiovascular disorder [None]
  - Cardiomyopathy [None]
  - Mitral valve incompetence [None]
  - Acute myocardial infarction [None]
  - Nausea [None]
  - Dyspnoea [None]
  - Asthenia [None]
  - Infusion site pain [None]
  - Septic shock [None]
  - Atelectasis [None]
  - Therapy change [None]
  - Acute lung injury [None]
  - Malnutrition [None]
  - Peripheral coldness [None]
  - Vomiting [None]
  - Arthralgia [None]
  - Peripheral ischaemia [None]
  - Hypokinesia [None]
  - Chronic obstructive pulmonary disease [None]
  - Pulmonary oedema [None]
  - Lethargy [None]
  - Blood albumin decreased [None]
  - Gastrooesophageal reflux disease [None]
  - Death [Fatal]
  - Hypoglycaemia [None]
  - Left atrial dilatation [None]
  - Chronic right ventricular failure [None]
  - Pulse absent [None]
  - Diarrhoea [Unknown]

NARRATIVE: CASE EVENT DATE: 20160725
